FAERS Safety Report 9203780 (Version 3)
Quarter: 2013Q2

REPORT INFORMATION
  Report Type: Spontaneous
  Country: GB (occurrence: None)
  Receive Date: 20130329
  Receipt Date: 20130626
  Transmission Date: 20140414
  Serious: Yes (Hospitalization, Other)
  Sender: FDA-Public Use
  Company Number: AUR-APL-2013-02533

PATIENT
  Age: 72 Year
  Sex: Male

DRUGS (7)
  1. ALENDRONIC ACID [Suspect]
     Indication: OSTEOPOROSIS
     Dates: start: 200803
  2. ADCAL-3 [Suspect]
     Indication: PRODUCT USED FOR UNKNOWN INDICATION
     Dosage: 2 DOSAGE FORMS (1 DOSAGE FORMS,2 IN 1 D), UNKNOWN
     Dates: start: 200803
  3. COLOFAC [Concomitant]
     Indication: GASTROINTESTINAL PAIN
  4. QUESTRAN [Suspect]
     Indication: BILE ACID MALABSORPTION
     Route: 048
     Dates: start: 1990, end: 201005
  5. VITAMIN B12 (CYNOCOBALAMIN) [Concomitant]
  6. BENDROFLUMETHIAZIDE (BENDROFLUMETHIAZIDE) [Concomitant]
  7. CODEINE PHOSPHATE (CODEINE PHOSPHATE) [Concomitant]

REACTIONS (7)
  - Osteoporosis [None]
  - Condition aggravated [None]
  - Inhibitory drug interaction [None]
  - Drug effect decreased [None]
  - Nephrolithiasis [None]
  - Blood pressure increased [None]
  - Renal hypertension [None]
